FAERS Safety Report 7299179-6 (Version None)
Quarter: 2011Q1

REPORT INFORMATION
  Report Type: 
  Country: None (occurrence: None)
  Receive Date: 20110208
  Receipt Date: 20110127
  Transmission Date: 20110831
  Serious: Yes (Hospitalization)
  Sender: FDA-Public Use
  Company Number: 025684

PATIENT
  Age: 85 Year
  Sex: Male
  Weight: 85.2 kg

DRUGS (5)
  1. MELOXICAM [Concomitant]
  2. METHOTREXATE [Concomitant]
  3. CERTOLIZUMAB PEGOL (CERTOLIZUMAB PEGOL) [Suspect]
     Indication: PSORIATIC ARTHROPATHY
     Dosage: (NO. OF DOSES:6 SUBCUTANEOUS), (SUBCUTANEOUS)
     Route: 058
     Dates: start: 20101021, end: 20110112
  4. CERTOLIZUMAB PEGOL (CERTOLIZUMAB PEGOL) [Suspect]
     Indication: PSORIATIC ARTHROPATHY
     Dosage: (NO. OF DOSES:6 SUBCUTANEOUS), (SUBCUTANEOUS)
     Route: 058
     Dates: start: 20110126
  5. FOLIC ACID [Concomitant]

REACTIONS (1)
  - CONCUSSION [None]
